FAERS Safety Report 17047858 (Version 2)
Quarter: 2019Q4

REPORT INFORMATION
  Report Type: Spontaneous
  Country: US (occurrence: US)
  Receive Date: 20191119
  Receipt Date: 20191119
  Transmission Date: 20200122
  Serious: No
  Sender: FDA-Public Use
  Company Number: US-BIOCON-BCN-2019-000891

PATIENT
  Sex: Male
  Weight: 77.18 kg

DRUGS (6)
  1. VITAMINS [Concomitant]
     Active Substance: VITAMINS
  2. ROSUVASTATIN CALCIUM. [Suspect]
     Active Substance: ROSUVASTATIN CALCIUM
     Indication: CARDIAC DISORDER
     Dosage: NDC # 70377-008-12
     Route: 048
     Dates: start: 2018
  3. COENZYME Q [Concomitant]
  4. ROSUVASTATIN CALCIUM. [Suspect]
     Active Substance: ROSUVASTATIN CALCIUM
     Indication: BLOOD CHOLESTEROL ABNORMAL
  5. LOSARTAN. [Concomitant]
     Active Substance: LOSARTAN
     Indication: CHOLESTEROSIS
  6. METOPROLOL. [Concomitant]
     Active Substance: METOPROLOL

REACTIONS (3)
  - Myalgia [Recovered/Resolved]
  - Paraesthesia [Recovered/Resolved]
  - Product quality issue [Unknown]
